FAERS Safety Report 9524346 (Version 1)
Quarter: 2013Q3

REPORT INFORMATION
  Report Type: Spontaneous
  Country: US (occurrence: US)
  Receive Date: 20130916
  Receipt Date: 20130916
  Transmission Date: 20140515
  Serious: Yes (Hospitalization)
  Sender: FDA-Public Use
  Company Number: US-JNJFOC-20130904399

PATIENT
  Sex: Female

DRUGS (1)
  1. HALDOL [Suspect]
     Indication: POLYMEDICATION
     Route: 042
     Dates: start: 201307, end: 201307

REACTIONS (3)
  - Pneumonia [Unknown]
  - Convulsion [Unknown]
  - Off label use [Unknown]
